FAERS Safety Report 9259919 (Version 1)
Quarter: 2013Q2

REPORT INFORMATION
  Report Type: Spontaneous
  Country: ES (occurrence: ES)
  Receive Date: 20130429
  Receipt Date: 20130429
  Transmission Date: 20140414
  Serious: Yes (Hospitalization)
  Sender: FDA-Public Use
  Company Number: ES-ROCHE-1219017

PATIENT
  Age: 52 Year
  Sex: Female
  Weight: 93 kg

DRUGS (6)
  1. PEGASYS [Suspect]
     Indication: CHRONIC HEPATITIS C
     Route: 058
     Dates: start: 20121005, end: 20130322
  2. REBETOL [Suspect]
     Indication: CHRONIC HEPATITIS C
     Route: 048
     Dates: start: 20121005, end: 20130327
  3. CIPROFLOXACIN [Suspect]
     Indication: URINARY TRACT INFECTION
     Route: 048
     Dates: start: 20130320, end: 20130323
  4. BINOCRIT [Concomitant]
     Indication: ANAEMIA
     Route: 065
     Dates: start: 20121109, end: 20121228
  5. EUCREAS [Concomitant]
     Indication: TYPE 2 DIABETES MELLITUS
     Route: 048
     Dates: end: 20130327
  6. INCIVO [Concomitant]
     Indication: CHRONIC HEPATITIS C
     Route: 048
     Dates: start: 20121102, end: 20130125

REACTIONS (1)
  - Renal failure acute [Recovered/Resolved]
